FAERS Safety Report 7824108-3 (Version None)
Quarter: 2011Q4

REPORT INFORMATION
  Report Type: 
  Country: None (occurrence: None)
  Receive Date: 20111019
  Receipt Date: 20111018
  Transmission Date: 20120403
  Serious: No
  Sender: FDA-Public Use
  Company Number: PHEH2011US06068

PATIENT
  Sex: Female

DRUGS (5)
  1. PRILOSEC [Concomitant]
     Indication: GASTROOESOPHAGEAL REFLUX DISEASE
     Dosage: 40 MG, QD
     Dates: start: 20070412
  2. TASIGNA [Suspect]
     Indication: CHRONIC MYELOID LEUKAEMIA
     Dosage: UNK UKN, UNK
     Route: 048
     Dates: start: 20110826
  3. SERTRALINE HYDROCHLORIDE [Concomitant]
     Dosage: 50 MG, QD
     Dates: start: 20110910
  4. ASPIRIN [Concomitant]
     Dosage: 81 MG, QD
  5. POTASSIUM CHLORIDE [Concomitant]
     Indication: BLOOD POTASSIUM DECREASED
     Dosage: 200 MG, QD
     Dates: start: 20110912

REACTIONS (2)
  - TREMOR [None]
  - ANXIETY [None]
